FAERS Safety Report 9033914 (Version 1)
Quarter: 2013Q1

REPORT INFORMATION
  Report Type: Spontaneous
  Country: US (occurrence: US)
  Receive Date: 20130128
  Receipt Date: 20130128
  Transmission Date: 20140127
  Serious: Yes (Other)
  Sender: FDA-Public Use
  Company Number: US-AMGEN-USASP2012067807

PATIENT
  Age: 61 Year
  Sex: Female
  Weight: 83 kg

DRUGS (14)
  1. ENBREL [Suspect]
     Indication: RHEUMATOID ARTHRITIS
     Dosage: 50 MG, QWK
     Route: 058
  2. PREDNISONE [Concomitant]
     Dosage: 2.5 MG, UNK
     Route: 048
  3. FOLIC ACID [Concomitant]
     Dosage: 5 MG, UNK
     Route: 048
  4. ALLEGRA-D [Concomitant]
     Dosage: UNK UNK, BID
     Route: 048
  5. CARBATROL [Concomitant]
     Dosage: 200 MG, UNK
     Route: 048
  6. SYNTHROID [Concomitant]
     Dosage: 112 MUG, UNK
     Route: 048
  7. METFORMIN [Concomitant]
     Dosage: 500 MG, UNK
     Route: 048
  8. CRESTOR [Concomitant]
     Dosage: 20 MG, UNK
     Route: 048
  9. METHOTREXATE [Concomitant]
     Dosage: 2.5 MG, UNK
     Route: 048
  10. ORENCIA [Concomitant]
     Dosage: 125 MG/ML, UNK
     Route: 058
  11. ARAVA [Concomitant]
     Dosage: 10 MG, UNK
     Route: 048
  12. LEVOTHYROXIN [Concomitant]
     Dosage: 100 MUG, UNK
     Route: 048
  13. BABY ASPIRIN [Concomitant]
     Dosage: 81 MG, UNK
     Route: 048
  14. CARVEDILOL [Concomitant]
     Dosage: 12.5 MG, UNK
     Route: 048

REACTIONS (2)
  - Rheumatoid lung [Unknown]
  - Therapeutic response decreased [Unknown]
